FAERS Safety Report 7157877-9 (Version None)
Quarter: 2010Q4

REPORT INFORMATION
  Report Type: 
  Country: None (occurrence: None)
  Receive Date: 20101214
  Receipt Date: 20101209
  Transmission Date: 20110411
  Serious: Yes (Hospitalization)
  Sender: FDA-Public Use
  Company Number: DE-PFIZER INC-2009152543

PATIENT
  Age: 61 Year
  Sex: Female
  Weight: 101 kg

DRUGS (9)
  1. BLINDED *NO SUBJECT DRUG [Suspect]
     Indication: CARDIAC FAILURE
     Dosage: BLINDED THERAPY; ONCE DAILY
     Route: 048
     Dates: start: 20080410
  2. PLACEBO [Suspect]
     Indication: CARDIAC FAILURE
     Dosage: BLINDED THERAPY; ONCE DAILY
     Route: 048
     Dates: start: 20080410
  3. EPLERENONE [Suspect]
     Indication: CARDIAC FAILURE
     Dosage: BLINDED THERAPY; ONCE DAILY
     Route: 048
     Dates: start: 20080410
  4. ATACAND [Concomitant]
     Dosage: UNK
     Route: 048
     Dates: start: 20080327
  5. BISOPROLOL [Concomitant]
     Dosage: UNK
     Route: 048
     Dates: start: 20080123
  6. MARCUMAR [Concomitant]
     Dosage: UNK
     Route: 048
     Dates: start: 20070927
  7. TORASEMIDE [Concomitant]
     Dosage: UNK
     Route: 048
     Dates: start: 20080327
  8. LEVOTHYROXINE SODIUM [Concomitant]
     Dosage: 150 UNK, UNK
     Route: 048
     Dates: start: 20070409
  9. VIGANTOLETTEN ^MERCK^ [Concomitant]
     Dosage: UNK
     Route: 048
     Dates: start: 20081001

REACTIONS (1)
  - TYPE 2 DIABETES MELLITUS [None]
